FAERS Safety Report 9822952 (Version 1)
Quarter: 2014Q1

REPORT INFORMATION
  Report Type: Spontaneous
  Country: US (occurrence: US)
  Receive Date: 20140116
  Receipt Date: 20140116
  Transmission Date: 20141002
  Serious: Yes (Death, Hospitalization, Other)
  Sender: FDA-Public Use
  Company Number: US-ELI_LILLY_AND_COMPANY-US201401004192

PATIENT
  Sex: Male

DRUGS (2)
  1. FORTEO [Suspect]
     Indication: OSTEOPOROSIS
     Dosage: UNK, UNKNOWN
     Route: 065
     Dates: start: 201203, end: 201311
  2. METFORMIN [Concomitant]
     Indication: DIABETES MELLITUS
     Route: 065

REACTIONS (8)
  - Death [Fatal]
  - Plasma cell myeloma [Unknown]
  - Pain [Unknown]
  - Protein total increased [Unknown]
  - Cough [Unknown]
  - Fracture [Unknown]
  - Gait disturbance [Unknown]
  - Dyspnoea [Unknown]
